FAERS Safety Report 7781046-2 (Version None)
Quarter: 2011Q3

REPORT INFORMATION
  Report Type: 
  Country: None (occurrence: None)
  Receive Date: 20110927
  Receipt Date: 20110921
  Transmission Date: 20111222
  Serious: Yes (Hospitalization)
  Sender: FDA-Public Use
  Company Number: DE-ABBOTT-11P-062-0857112-00

PATIENT
  Age: 31 Year
  Sex: Female
  Weight: 58.2 kg

DRUGS (4)
  1. AZATHIOPRINE [Concomitant]
     Indication: CROHN'S DISEASE
     Dates: start: 20070301, end: 20090201
  2. HUMIRA [Suspect]
     Indication: CROHN'S DISEASE
     Route: 058
     Dates: start: 20110201
  3. AZATHIOPRINE [Concomitant]
     Dates: start: 20101101
  4. SYSTEMIC STEROIDS [Concomitant]
     Indication: CROHN'S DISEASE
     Route: 048

REACTIONS (7)
  - ILEITIS [None]
  - PSEUDOPOLYP [None]
  - ILEAL ULCER [None]
  - SMALL INTESTINAL HAEMORRHAGE [None]
  - GASTROINTESTINAL OEDEMA [None]
  - CROHN'S DISEASE [None]
  - ILEAL STENOSIS [None]
